FAERS Safety Report 6601713-3 (Version None)
Quarter: 2010Q1

REPORT INFORMATION
  Report Type: 
  Country: None (occurrence: None)
  Receive Date: 20100225
  Receipt Date: 20100215
  Transmission Date: 20100710
  Serious: Yes (Hospitalization, Other)
  Sender: FDA-Public Use
  Company Number: JP-PFIZER INC-2010017996

PATIENT
  Age: 63 Year
  Sex: Female
  Weight: 91.5 kg

DRUGS (3)
  1. AZITHROMYCIN [Suspect]
     Indication: PNEUMONIA
     Dosage: 500 MG DAILY
     Route: 042
     Dates: start: 20100205, end: 20100207
  2. AZITHROMYCIN [Suspect]
     Dosage: 500 MG DAILY
     Route: 048
     Dates: start: 20100208, end: 20100211
  3. AMLODIPINE BESILATE [Concomitant]
     Indication: HYPERTENSION
     Dosage: FREQUENCY: ONCE DAILY,
     Route: 048
     Dates: start: 20090815

REACTIONS (1)
  - CARDIAC FAILURE CONGESTIVE [None]
